FAERS Safety Report 13712991 (Version 2)
Quarter: 2017Q3

REPORT INFORMATION
  Report Type: Report from Study
  Country: GR (occurrence: GR)
  Receive Date: 20170704
  Receipt Date: 20170710
  Transmission Date: 20171127
  Serious: Yes (Other)
  Sender: FDA-Public Use
  Company Number: PHHY2017GR090113

PATIENT
  Age: 55 Year
  Sex: Female

DRUGS (2)
  1. CICLOSPORIN [Suspect]
     Active Substance: CYCLOSPORINE
     Indication: DERMATITIS ALLERGIC
     Dosage: 3.5 MG/KG, UNK
     Route: 065
  2. CICLOSPORIN [Suspect]
     Active Substance: CYCLOSPORINE
     Indication: URTICARIA
     Dosage: 3 MG/KG, UNK
     Route: 065

REACTIONS (7)
  - Pruritus [Not Recovered/Not Resolved]
  - Urticaria [Not Recovered/Not Resolved]
  - Papule [Unknown]
  - Rash maculo-papular [Unknown]
  - Dermatitis bullous [Not Recovered/Not Resolved]
  - Drug ineffective for unapproved indication [Unknown]
  - Prurigo [Unknown]
